FAERS Safety Report 7504038-7 (Version None)
Quarter: 2011Q2

REPORT INFORMATION
  Report Type: 
  Country: None (occurrence: None)
  Receive Date: 20110525
  Receipt Date: 20110512
  Transmission Date: 20111010
  Serious: Yes (Hospitalization, Other)
  Sender: FDA-Public Use
  Company Number: PHHY2011DE38563

PATIENT
  Age: 67 Year
  Sex: Male

DRUGS (1)
  1. EXELON [Suspect]
     Indication: PARKINSON'S DISEASE
     Dosage: 1.5 MG, BID
     Route: 048
     Dates: start: 20091104

REACTIONS (3)
  - HAEMATEMESIS [None]
  - GASTRIC HAEMORRHAGE [None]
  - PNEUMONIA ASPIRATION [None]
